FAERS Safety Report 16173506 (Version 1)
Quarter: 2019Q2

REPORT INFORMATION
  Report Type: Spontaneous
  Country: FI (occurrence: FI)
  Receive Date: 20190409
  Receipt Date: 20190409
  Transmission Date: 20190711
  Serious: Yes (Death, Hospitalization, Other)
  Sender: FDA-Public Use
  Company Number: FI-SA-2019SA096951

PATIENT
  Sex: Female

DRUGS (2)
  1. ALEMTUZUMAB [Suspect]
     Active Substance: ALEMTUZUMAB
  2. ALEMTUZUMAB [Suspect]
     Active Substance: ALEMTUZUMAB
     Indication: RELAPSING-REMITTING MULTIPLE SCLEROSIS

REACTIONS (9)
  - Anaemia [Fatal]
  - Coagulopathy [Fatal]
  - Thrombocytopenia [Fatal]
  - Hepatic encephalopathy [Fatal]
  - Abdominal pain [Fatal]
  - Hepatic necrosis [Fatal]
  - Pyrexia [Fatal]
  - Haemophagocytic lymphohistiocytosis [Fatal]
  - Cholecystitis [Fatal]
